FAERS Safety Report 6279921-3 (Version None)
Quarter: 2009Q3

REPORT INFORMATION
  Report Type: 
  Country: None (occurrence: None)
  Receive Date: 20090723
  Receipt Date: 20090513
  Transmission Date: 20100115
  Serious: Yes (Hospitalization)
  Sender: FDA-Public Use
  Company Number: US-AMGEN-KDL347086

PATIENT
  Age: 50 Year
  Sex: Female

DRUGS (15)
  1. PROCRIT [Suspect]
     Indication: RENAL FAILURE CHRONIC
     Route: 058
  2. PANTOPRAZOLE SODIUM [Concomitant]
  3. NIFEDIPINE [Concomitant]
  4. PLAVIX [Concomitant]
  5. SODIUM POLYSTYRENE SULFONATE [Concomitant]
  6. DICYCLOMIDE HCL [Concomitant]
  7. FLEXERIL [Concomitant]
  8. ZYRTEC [Concomitant]
  9. CALCITRIOL [Concomitant]
  10. NEPHRO-CAPS [Concomitant]
  11. SINGULAIR [Concomitant]
  12. IRON [Concomitant]
  13. ASPIRIN [Concomitant]
  14. SIMVASTATIN [Concomitant]
  15. UNSPECIFIED MEDICATION [Concomitant]

REACTIONS (1)
  - ANAEMIA [None]
